FAERS Safety Report 4355555-2 (Version None)
Quarter: 2004Q2

REPORT INFORMATION
  Report Type: 
  Country: None (occurrence: None)
  Receive Date: 20040430
  Receipt Date: 20031022
  Transmission Date: 20050107
  Serious: Yes (Death)
  Sender: FDA-Public Use
  Company Number: KDL015290

PATIENT
  Age: 60 Year
  Sex: Female
  Weight: 82.2 kg

DRUGS (1)
  1. EPOGEN [Suspect]
     Indication: ANAEMIA OF MALIGNANT DISEASE
     Dosage: 60000 U, AS NECESSARY, SC
     Route: 058
     Dates: start: 20020327

REACTIONS (3)
  - MALIGNANT NEOPLASM PROGRESSION [None]
  - MEDICATION TAMPERING [None]
  - THERAPEUTIC RESPONSE DECREASED [None]
